FAERS Safety Report 16201518 (Version 3)
Quarter: 2019Q2

REPORT INFORMATION
  Report Type: Report from Study
  Country: US (occurrence: US)
  Receive Date: 20190416
  Receipt Date: 20190502
  Transmission Date: 20190711
  Serious: Yes (Hospitalization, Other)
  Sender: FDA-Public Use
  Company Number: US-GILEAD-2019-0402498

PATIENT
  Age: 89 Year
  Sex: Female
  Weight: 58.05 kg

DRUGS (19)
  1. PROLIA [Concomitant]
     Active Substance: DENOSUMAB
  2. PROTONIX [OMEPRAZOLE] [Concomitant]
     Active Substance: OMEPRAZOLE
  3. AMBRISENTAN [Suspect]
     Active Substance: AMBRISENTAN
     Dosage: 10 MG, QD
     Route: 065
     Dates: start: 20171223
  4. LASIX [Concomitant]
     Active Substance: FUROSEMIDE
  5. PANTOPRAZOLE [Concomitant]
     Active Substance: PANTOPRAZOLE
  6. COUMADIN [Concomitant]
     Active Substance: WARFARIN SODIUM
  7. KLOR-CON M20 [Concomitant]
     Active Substance: POTASSIUM CHLORIDE
  8. FERROUS SULFATE. [Concomitant]
     Active Substance: FERROUS SULFATE
  9. LOSARTAN. [Concomitant]
     Active Substance: LOSARTAN
  10. AMBRISENTAN [Suspect]
     Active Substance: AMBRISENTAN
     Indication: PULMONARY ARTERIAL HYPERTENSION
     Dosage: 5 MG, QD
     Route: 048
     Dates: start: 20171223
  11. VITAMIN C + E [Concomitant]
  12. TRIAMCINOLONE [Concomitant]
     Active Substance: TRIAMCINOLONE
  13. ONDANSETRON [Concomitant]
     Active Substance: ONDANSETRON
  14. GAS-X [Concomitant]
     Active Substance: DIMETHICONE
  15. ACETAMINOPHEN. [Concomitant]
     Active Substance: ACETAMINOPHEN
  16. CALCIUM + D3 [CALCIUM;COLECALCIFEROL] [Concomitant]
  17. METOLAZONE. [Concomitant]
     Active Substance: METOLAZONE
  18. PROCTOSOL HC [Concomitant]
  19. MELATONIN [Concomitant]
     Active Substance: MELATONIN

REACTIONS (4)
  - Intentional dose omission [Not Recovered/Not Resolved]
  - Gastric ulcer [Recovered/Resolved]
  - Blood loss anaemia [Unknown]
  - Haemorrhoids [Unknown]

NARRATIVE: CASE EVENT DATE: 20190324
